FAERS Safety Report 25944716 (Version 1)
Quarter: 2025Q4

REPORT INFORMATION
  Report Type: Spontaneous
  Country: US (occurrence: US)
  Receive Date: 20251021
  Receipt Date: 20251021
  Transmission Date: 20260118
  Serious: No
  Sender: Jubilant Radiopharma
  Company Number: US-JUBILANT RADIOPHARMA-2025US000028

PATIENT

DRUGS (1)
  1. DRAXIMAGE DTPA [Suspect]
     Active Substance: TECHNETIUM TC-99M PENTETATE
     Indication: Ventilation/perfusion scan
     Dosage: 40
     Dates: start: 20250928, end: 20250928

REACTIONS (1)
  - Paraesthesia oral [Recovered/Resolved]

NARRATIVE: CASE EVENT DATE: 20250928
